FAERS Safety Report 20378165 (Version 3)
Quarter: 2022Q2

REPORT INFORMATION
  Report Type: Spontaneous
  Country: JP (occurrence: JP)
  Receive Date: 20220126
  Receipt Date: 20220623
  Transmission Date: 20220721
  Serious: No
  Sender: FDA-Public Use
  Company Number: JP-GLAXOSMITHKLINE-JP2022JPN010547

PATIENT

DRUGS (6)
  1. SOTROVIMAB [Suspect]
     Active Substance: SOTROVIMAB
     Indication: COVID-19
     Dosage: 500 MG
     Route: 042
     Dates: start: 20220114, end: 20220114
  2. MAGNESIUM OXIDE [Suspect]
     Active Substance: MAGNESIUM OXIDE
     Indication: Constipation
     Dosage: UP TO 990 MG/DOSE
     Route: 048
     Dates: start: 20211026
  3. SODIUM FERROUS CITRATE [Suspect]
     Active Substance: SODIUM FERROUS CITRATE
     Indication: Anaemia
     Dosage: 100 MG/DOSE
     Route: 048
     Dates: start: 20211104
  4. CALONAL [Suspect]
     Active Substance: ACETAMINOPHEN
     Indication: Abdominal pain
     Dosage: 400 MG, PRN
     Route: 048
     Dates: start: 20211108, end: 20211108
  5. CALONAL [Suspect]
     Active Substance: ACETAMINOPHEN
     Indication: Leiomyoma
  6. DEXTROMETHORPHAN HYDROBROMIDE [Suspect]
     Active Substance: DEXTROMETHORPHAN HYDROBROMIDE
     Indication: Cough
     Dosage: 45 MG/DOSE
     Route: 048
     Dates: start: 20220114, end: 20220118

REACTIONS (2)
  - Exposure during pregnancy [Unknown]
  - Live birth [Unknown]
